FAERS Safety Report 9968623 (Version 1)
Quarter: 2014Q1

REPORT INFORMATION
  Report Type: Report from Study
  Country: US (occurrence: US)
  Receive Date: 20140306
  Receipt Date: 20140306
  Transmission Date: 20141002
  Serious: No
  Sender: FDA-Public Use
  Company Number: US-ABBVIE-13P-163-1142172-00

PATIENT
  Age: 28 Year
  Sex: Male

DRUGS (2)
  1. HUMIRA [Suspect]
     Indication: PSORIASIS
     Dosage: LOADING DOSE
     Dates: start: 20130828
  2. DERMA SMOOTH OIL [Concomitant]
     Indication: PSORIASIS
     Dosage: 3-4 TIMES A WEEK ON THE SCALP

REACTIONS (1)
  - Drug dispensing error [Recovered/Resolved]
